FAERS Safety Report 9192344 (Version 2)
Quarter: 2013Q3

REPORT INFORMATION
  Report Type: Spontaneous
  Country: US (occurrence: US)
  Receive Date: 20130327
  Receipt Date: 20130722
  Transmission Date: 20140515
  Serious: Yes (Death, Hospitalization)
  Sender: FDA-Public Use
  Company Number: US-BAYER-2013-037382

PATIENT
  Age: 40 Year
  Sex: Female
  Weight: 105.22 kg

DRUGS (7)
  1. YAZ [Suspect]
     Dosage: UNK
     Dates: start: 2001, end: 2004
  2. YASMIN [Suspect]
     Dosage: UNK
     Dates: start: 2001, end: 2004
  3. OCELLA [Suspect]
     Dosage: UNK
     Dates: start: 2001, end: 2004
  4. XANAX [Concomitant]
  5. EPINEPHRINE [Concomitant]
     Indication: CARDIO-RESPIRATORY ARREST
  6. ATROPINE [Concomitant]
     Indication: CARDIO-RESPIRATORY ARREST
  7. SODIUM BICARBONATE [Concomitant]

REACTIONS (3)
  - Pulmonary embolism [Fatal]
  - Pain [Fatal]
  - Pain [None]
